FAERS Safety Report 4576077-X (Version None)
Quarter: 2005Q1

REPORT INFORMATION
  Report Type: 
  Country: None (occurrence: None)
  Receive Date: 20050204
  Receipt Date: 20050114
  Transmission Date: 20050727
  Serious: No
  Sender: FDA-Public Use
  Company Number: 2005PK00095

PATIENT
  Age: 8 Year
  Sex: Female
  Weight: 20 kg

DRUGS (5)
  1. FOSCAVIR [Suspect]
     Indication: EPSTEIN-BARR VIRUS INFECTION
     Dosage: 3690 MG DAILY IV
     Route: 042
     Dates: start: 20041130, end: 20041202
  2. FOSCAVIR [Suspect]
     Indication: EPSTEIN-BARR VIRUS INFECTION
     Dosage: 1845 MG DAILY IV
     Route: 042
     Dates: start: 20041203, end: 20041204
  3. FOSCAVIR [Suspect]
     Indication: EPSTEIN-BARR VIRUS INFECTION
     Dosage: 1200 MG DAILY INV
     Route: 042
     Dates: start: 20041205, end: 20041205
  4. FOSCAVIR [Suspect]
     Indication: EPSTEIN-BARR VIRUS INFECTION
     Dosage: 2400 MG DAILY IV
     Route: 042
     Dates: start: 20041206, end: 20041206
  5. FOSCAVIR [Suspect]
     Indication: EPSTEIN-BARR VIRUS INFECTION
     Dosage: 1200 MG DAILY IV
     Route: 042
     Dates: start: 20041207, end: 20041207

REACTIONS (3)
  - BLOOD CREATININE INCREASED [None]
  - INULIN RENAL CLEARANCE DECREASED [None]
  - RENAL PAIN [None]
